FAERS Safety Report 17670717 (Version 2)
Quarter: 2020Q2

REPORT INFORMATION
  Report Type: Spontaneous
  Country: US (occurrence: US)
  Receive Date: 20200415
  Receipt Date: 20200421
  Transmission Date: 20200713
  Serious: No
  Sender: FDA-Public Use
  Company Number: US-SA-2020SA094575

PATIENT
  Age: 67 Year
  Sex: Male

DRUGS (10)
  1. GABAPENTIN. [Concomitant]
     Active Substance: GABAPENTIN
     Dosage: UNK
  2. DESOXIMETASONE. [Concomitant]
     Active Substance: DESOXIMETASONE
     Dosage: UNK
  3. DUPIXENT [Suspect]
     Active Substance: DUPILUMAB
     Dosage: 300 MG, QOW
     Route: 058
     Dates: start: 20200402
  4. TACROLIMUS. [Concomitant]
     Active Substance: TACROLIMUS
     Dosage: UNK
  5. PREDNISONE. [Concomitant]
     Active Substance: PREDNISONE
     Dosage: UNK
  6. FLUOCINOLONE ACETONIDE. [Concomitant]
     Active Substance: FLUOCINOLONE ACETONIDE
     Dosage: UNK
  7. DESONIDE. [Concomitant]
     Active Substance: DESONIDE
     Dosage: UNK
  8. BETAMETHASONE DIPROPIONATE. [Concomitant]
     Active Substance: BETAMETHASONE DIPROPIONATE
     Dosage: UNK
  9. DUPIXENT [Suspect]
     Active Substance: DUPILUMAB
     Indication: DERMATITIS ATOPIC
     Dosage: 300 MG, QOW
     Route: 058
     Dates: start: 20200201, end: 20200301
  10. HYDROXYZINE [Concomitant]
     Active Substance: HYDROXYZINE HYDROCHLORIDE
     Dosage: UNK

REACTIONS (15)
  - Inflammation [Unknown]
  - Pruritus [Unknown]
  - Eye pruritus [Unknown]
  - Erythema [Unknown]
  - Swelling [Unknown]
  - Pain [Unknown]
  - Neck pain [Unknown]
  - Lacrimation increased [Unknown]
  - Skin exfoliation [Unknown]
  - Eye irritation [Unknown]
  - Lip pain [Unknown]
  - Drug ineffective [Unknown]
  - Stomatitis [Unknown]
  - Oral pain [Unknown]
  - Eyelid pain [Unknown]

NARRATIVE: CASE EVENT DATE: 2020
